FAERS Safety Report 11578020 (Version 10)
Quarter: 2017Q1

REPORT INFORMATION
  Report Type: Report from Study
  Country: BR (occurrence: BR)
  Receive Date: 20150930
  Receipt Date: 20170301
  Transmission Date: 20170428
  Serious: Yes (Hospitalization, Other)
  Sender: FDA-Public Use
  Company Number: PHHY2015BR117194

PATIENT
  Age: 60 Year
  Sex: Female
  Weight: 75 kg

DRUGS (3)
  1. CAPTOPRIL. [Concomitant]
     Active Substance: CAPTOPRIL
     Indication: BLOOD PRESSURE INCREASED
     Dosage: 2 DF, QD
     Route: 048
  2. SANDOSTATIN LAR DEPOT [Suspect]
     Active Substance: OCTREOTIDE ACETATE
     Indication: ACROMEGALY
     Dosage: 30 MG, QMO, ONCE A MONTH
     Route: 030
     Dates: start: 201508
  3. HYDROCHLOROTHIAZIDE. [Concomitant]
     Active Substance: HYDROCHLOROTHIAZIDE
     Indication: PRODUCT USED FOR UNKNOWN INDICATION
     Dosage: 1 DF, QD
     Route: 048

REACTIONS (36)
  - Tremor [Unknown]
  - Diarrhoea [Unknown]
  - Urinary tract infection [Unknown]
  - Cold sweat [Recovered/Resolved]
  - Hyperhidrosis [Unknown]
  - Feeling abnormal [Unknown]
  - Feeding disorder [Unknown]
  - Eating disorder [Unknown]
  - Spinal pain [Not Recovered/Not Resolved]
  - Limb deformity [Unknown]
  - Cystitis [Recovered/Resolved]
  - Renal impairment [Unknown]
  - Urinary incontinence [Recovered/Resolved]
  - Swelling [Unknown]
  - Hernia pain [Not Recovered/Not Resolved]
  - Tongue disorder [Unknown]
  - Spinal disorder [Unknown]
  - Asthenia [Unknown]
  - Headache [Unknown]
  - Gait disturbance [Unknown]
  - Head discomfort [Unknown]
  - Nausea [Unknown]
  - Kidney infection [Unknown]
  - Dysstasia [Unknown]
  - Alopecia [Unknown]
  - Malaise [Unknown]
  - Bile output increased [Unknown]
  - Syncope [Unknown]
  - Weight decreased [Unknown]
  - General physical condition abnormal [Unknown]
  - Dysentery [Unknown]
  - Muscle spasms [Unknown]
  - Hernial eventration [Unknown]
  - Renal colic [Unknown]
  - Vomiting [Unknown]
  - Retching [Unknown]

NARRATIVE: CASE EVENT DATE: 20160218
